FAERS Safety Report 9040447 (Version 1)
Quarter: 2013Q1

REPORT INFORMATION
  Report Type: Report from Study
  Country: US (occurrence: US)
  Receive Date: 20130129
  Receipt Date: 20130129
  Transmission Date: 20140127
  Serious: No
  Sender: FDA-Public Use
  Company Number: US-ABBOTT-12P-163-0889449-00

PATIENT
  Sex: Female

DRUGS (6)
  1. HUMIRA 40 MG/0.8 ML PEN [Suspect]
     Indication: RHEUMATOID ARTHRITIS
     Dates: start: 2011
  2. MELOXICAM [Concomitant]
     Indication: RHEUMATOID ARTHRITIS
     Dosage: DAILY
  3. HORMONE REPLACEMENT TABLET [Concomitant]
     Indication: HORMONE REPLACEMENT THERAPY
     Dosage: DAILY
  4. VITAMINS [Concomitant]
     Indication: PRODUCT USED FOR UNKNOWN INDICATION
     Dosage: DAILY
  5. MEDICATION UNKNOWN NAME [Concomitant]
     Indication: HYPERTENSION
     Dosage: DAILY
  6. MEDICATION UNKNOWN NAME [Concomitant]
     Indication: HYPERTENSION

REACTIONS (4)
  - Psoriasis [Not Recovered/Not Resolved]
  - Psoriasis [Not Recovered/Not Resolved]
  - Rash macular [Recovering/Resolving]
  - Stomatitis [Recovered/Resolved]
